FAERS Safety Report 25897865 (Version 1)
Quarter: 2025Q4

REPORT INFORMATION
  Report Type: Spontaneous
  Country: EU (occurrence: EU)
  Receive Date: 20251008
  Receipt Date: 20251008
  Transmission Date: 20260119
  Serious: Yes (Other)
  Sender: NOVARTIS
  Company Number: None

PATIENT
  Age: 64 Year
  Sex: Male

DRUGS (4)
  1. COSENTYX [Suspect]
     Active Substance: SECUKINUMAB
     Indication: Psoriasis
     Dosage: UNK (COSENTYX 150MG X 2 (300MG): INDUCCION, 1XSEM 4 SEMANAS Y APARTIR DE LA 5? UNA AL MES)
     Route: 065
     Dates: start: 20170131, end: 202506
  2. HUMIRA [Suspect]
     Active Substance: ADALIMUMAB
     Indication: Psoriasis
     Dosage: UNK
     Route: 065
     Dates: start: 2016, end: 20170131
  3. ATORVASTATIN [Concomitant]
     Active Substance: ATORVASTATIN
     Indication: Dyslipidaemia
     Dosage: UNK
     Route: 065
     Dates: start: 2014
  4. RAMIPRIL [Concomitant]
     Active Substance: RAMIPRIL
     Indication: Hypertension
     Dosage: UNK
     Route: 065
     Dates: start: 2014

REACTIONS (1)
  - Follicular lymphoma [Not Recovered/Not Resolved]

NARRATIVE: CASE EVENT DATE: 20221001
